FAERS Safety Report 4779891-0 (Version None)
Quarter: 2005Q3

REPORT INFORMATION
  Report Type: 
  Country: None (occurrence: None)
  Receive Date: 20050914
  Receipt Date: 20050616
  Transmission Date: 20060218
  Serious: Yes (Hospitalization)
  Sender: FDA-Public Use
  Company Number: 163-20785-05050059

PATIENT
  Age: 71 Year
  Sex: Male

DRUGS (5)
  1. THALOMID [Suspect]
     Indication: ANOREXIA
     Dosage: 50 MG, DAILY, ORAL
     Route: 048
     Dates: start: 20050304, end: 20050318
  2. MORPHINE [Concomitant]
  3. RITALIN [Concomitant]
  4. ATENOLOL [Concomitant]
  5. REGLAN [Concomitant]

REACTIONS (2)
  - CONSTIPATION [None]
  - DYSPNOEA [None]
